FAERS Safety Report 26059480 (Version 1)
Quarter: 2025Q4

REPORT INFORMATION
  Report Type: Spontaneous
  Country: US (occurrence: US)
  Receive Date: 20251118
  Receipt Date: 20251118
  Transmission Date: 20260118
  Serious: No
  Sender: JOHNSON AND JOHNSON
  Company Number: US-JNJFOC-20251146154

PATIENT
  Sex: Female

DRUGS (1)
  1. TREMFYA [Suspect]
     Active Substance: GUSELKUMAB
     Indication: Gastrointestinal disorder
     Route: 058

REACTIONS (2)
  - Depression [Unknown]
  - Brain fog [Unknown]

NARRATIVE: CASE EVENT DATE: 20251105
